FAERS Safety Report 7652805-1 (Version None)
Quarter: 2011Q3

REPORT INFORMATION
  Report Type: 
  Country: None (occurrence: None)
  Receive Date: 20110803
  Receipt Date: 20110720
  Transmission Date: 20111222
  Serious: Yes (Other)
  Sender: FDA-Public Use
  Company Number: DE-CELGENEUS-062-21880-11072264

PATIENT

DRUGS (2)
  1. REVLIMID [Suspect]
     Dosage: 10 MILLIGRAM
     Route: 048
     Dates: start: 20031201, end: 20100101
  2. WHOLE BLOOD [Concomitant]
     Route: 065

REACTIONS (9)
  - B-CELL LYMPHOMA [None]
  - ADVERSE DRUG REACTION [None]
  - NO THERAPEUTIC RESPONSE [None]
  - REFRACTORY ANAEMIA WITH AN EXCESS OF BLASTS [None]
  - KARYOTYPE ANALYSIS ABNORMAL [None]
  - MYELODYSPLASTIC SYNDROME [None]
  - MYELODYSPLASTIC SYNDROME TRANSFORMATION [None]
  - ACUTE MYELOID LEUKAEMIA [None]
  - BLOOD PRODUCT TRANSFUSION DEPENDENT [None]
